FAERS Safety Report 16899056 (Version 1)
Quarter: 2019Q4

REPORT INFORMATION
  Report Type: Spontaneous
  Country: BR (occurrence: BR)
  Receive Date: 20191009
  Receipt Date: 20191009
  Transmission Date: 20200122
  Serious: Yes (Other)
  Sender: FDA-Public Use
  Company Number: BR-EMD SERONO-9121367

PATIENT
  Age: 74 Year
  Sex: Male
  Weight: 83 kg

DRUGS (5)
  1. ALENIA                             /01538101/ [Concomitant]
     Active Substance: BUDESONIDE\FORMOTEROL FUMARATE
     Indication: EMPHYSEMA
     Dosage: 12/400MCG
     Route: 055
     Dates: start: 2011
  2. SIMVASTATIN. [Concomitant]
     Active Substance: SIMVASTATIN
     Indication: HYPERCHOLESTEROLAEMIA
     Dosage: UNSPECIFIED DOSE
     Dates: start: 2008
  3. SUSTRATE [Concomitant]
     Active Substance: PROPATYL NITRATE
     Indication: ARRHYTHMIA
     Dosage: UNSPECIFIED DOSE
     Dates: start: 2008
  4. METFORMIN HYDROCHLORIDE. [Suspect]
     Active Substance: METFORMIN HYDROCHLORIDE
     Indication: DIABETES MELLITUS
     Dosage: UNSPECIFIED DOSE
     Route: 048
     Dates: start: 2015
  5. TEOLONG [Concomitant]
     Indication: ARRHYTHMIA
     Dosage: UNSPECIFIED DOSE
     Dates: start: 2008

REACTIONS (3)
  - Angina pectoris [Recovered/Resolved]
  - Infarction [Recovered/Resolved]
  - Incorrect drug administration rate [Unknown]

NARRATIVE: CASE EVENT DATE: 2016
